FAERS Safety Report 6688286-4 (Version None)
Quarter: 2010Q2

REPORT INFORMATION
  Report Type: 
  Country: None (occurrence: None)
  Receive Date: 20100420
  Receipt Date: 20100408
  Transmission Date: 20101027
  Serious: Yes (Death, Other)
  Sender: FDA-Public Use
  Company Number: US-ROCHE-694619

PATIENT
  Sex: Male
  Weight: 64 kg

DRUGS (14)
  1. CAPECITABINE [Suspect]
     Dosage: ONE WEEK ON AND 1 WEEK OFF
     Route: 048
     Dates: start: 20091201, end: 20100218
  2. AVASTIN [Suspect]
     Route: 065
     Dates: start: 20051201, end: 20060501
  3. AVASTIN [Suspect]
     Route: 065
     Dates: start: 20060601, end: 20070101
  4. AVASTIN [Suspect]
     Route: 065
     Dates: start: 20071201
  5. FOLFOX REGIMEN [Concomitant]
     Dates: start: 20051201, end: 20060501
  6. FLUOROURACIL [Concomitant]
     Dates: start: 20060601, end: 20070101
  7. FLUOROURACIL [Concomitant]
     Dates: start: 20071201
  8. IRINOTECAN HCL [Concomitant]
     Dates: start: 20071201
  9. IRINOTECAN HCL [Concomitant]
     Dates: start: 20090701
  10. LEUCOVORIN CALCIUM [Concomitant]
     Dates: start: 20071201
  11. LEUCOVORIN CALCIUM [Concomitant]
     Dates: start: 20090701
  12. ERBITUX [Concomitant]
     Dates: start: 20090701
  13. ELOXATIN [Concomitant]
     Dates: start: 20091201, end: 20100218
  14. VECTIBIX [Concomitant]
     Dates: start: 20091201, end: 20100218

REACTIONS (2)
  - JAUNDICE CHOLESTATIC [None]
  - MALIGNANT NEOPLASM PROGRESSION [None]
